FAERS Safety Report 8947632 (Version 1)
Quarter: 2012Q4

REPORT INFORMATION
  Report Type: 
  Country: US (occurrence: US)
  Receive Date: 20121205
  Receipt Date: 20121205
  Transmission Date: 20130627
  Serious: No
  Sender: FDA-Public Use
  Company Number: US-BAYER-2012-127628

PATIENT
  Sex: Female

DRUGS (1)
  1. MIRENA [Suspect]
     Indication: MENORRHAGIA
     Dosage: 20 ?g/d, CONT
     Route: 015
     Dates: start: 201203

REACTIONS (3)
  - Abdominal pain [None]
  - Menstruation delayed [None]
  - Vulvovaginal pain [None]
